FAERS Safety Report 8064203-X (Version None)
Quarter: 2012Q1

REPORT INFORMATION
  Report Type: 
  Country: None (occurrence: None)
  Receive Date: 20120123
  Receipt Date: 20120120
  Transmission Date: 20120608
  Serious: Yes (Other)
  Sender: FDA-Public Use
  Company Number: US-ROCHE-792826

PATIENT
  Sex: Male
  Weight: 65.83 kg

DRUGS (5)
  1. ASPIRIN [Concomitant]
  2. ACETAMINOPHEN [Concomitant]
  3. ACCUTANE [Suspect]
     Indication: ACNE
     Route: 065
  4. IBUPROFEN (ADVIL) [Concomitant]
  5. ACCUTANE [Suspect]
     Dates: start: 20010301, end: 20010831

REACTIONS (7)
  - DEPRESSION [None]
  - INFLAMMATORY BOWEL DISEASE [None]
  - SUICIDAL IDEATION [None]
  - CROHN'S DISEASE [None]
  - COLITIS ULCERATIVE [None]
  - INTESTINAL ULCER [None]
  - INTESTINAL OBSTRUCTION [None]
